FAERS Safety Report 17808926 (Version 1)
Quarter: 2020Q2

REPORT INFORMATION
  Report Type: Spontaneous
  Country: US (occurrence: US)
  Receive Date: 20200520
  Receipt Date: 20200520
  Transmission Date: 20200714
  Serious: Yes (Other)
  Sender: FDA-Public Use
  Company Number: US-SA-2020SA120123

PATIENT
  Age: 46 Year
  Sex: Female

DRUGS (4)
  1. CAMPATH [Suspect]
     Active Substance: ALEMTUZUMAB
     Indication: TRANSPLANT REJECTION
     Dosage: 30 MG, 1X
     Dates: start: 2018, end: 2018
  2. METHYLPREDNISOLONE. [Suspect]
     Active Substance: METHYLPREDNISOLONE
     Dosage: CUMULATIVE DOSE OF 1.5 GM
     Dates: start: 2018
  3. ANTI-THYMOCYTE GLOBULIN (RABBIT) NOS [Suspect]
     Active Substance: LAPINE T-LYMPHOCYTE IMMUNE GLOBULIN
     Indication: TRANSPLANT REJECTION
     Dosage: 3 MG/KG
     Dates: start: 20181029
  4. METHYLPREDNISOLONE. [Suspect]
     Active Substance: METHYLPREDNISOLONE
     Indication: TRANSPLANT REJECTION
     Dosage: 1.5 G
     Dates: start: 20181024

REACTIONS (3)
  - Upper respiratory tract infection [Recovered/Resolved]
  - Off label use [Unknown]
  - Rhinovirus infection [Recovered/Resolved]
